FAERS Safety Report 17777410 (Version 5)
Quarter: 2020Q3

REPORT INFORMATION
  Report Type: Report from Study
  Country: US (occurrence: US)
  Receive Date: 20200513
  Receipt Date: 20200710
  Transmission Date: 20201102
  Serious: Yes (Other)
  Sender: FDA-Public Use
  Company Number: US-BRISTOL-MYERS SQUIBB COMPANY-BMS-2020-036700

PATIENT
  Age: 65 Year
  Sex: Female

DRUGS (4)
  1. NIVOLUMAB [Suspect]
     Active Substance: NIVOLUMAB
     Indication: MALIGNANT MELANOMA
     Dosage: UNK, Q4WK; 1ST INFUSION
     Route: 042
     Dates: start: 202002
  2. NIVOLUMAB [Suspect]
     Active Substance: NIVOLUMAB
     Dosage: UNK, Q4WK; THIRD INFUSION
     Route: 042
     Dates: start: 20200423
  3. METOPROLOL. [Concomitant]
     Active Substance: METOPROLOL
     Indication: PRODUCT USED FOR UNKNOWN INDICATION
     Route: 065
  4. HYDROCHLOROTHIAZIDE. [Concomitant]
     Active Substance: HYDROCHLOROTHIAZIDE
     Indication: PRODUCT USED FOR UNKNOWN INDICATION
     Route: 065

REACTIONS (16)
  - Musculoskeletal pain [Unknown]
  - Cough [Unknown]
  - Dry skin [Unknown]
  - Malignant melanoma [Not Recovered/Not Resolved]
  - Bone disorder [Not Recovered/Not Resolved]
  - Pruritus [Recovering/Resolving]
  - Eczema [Recovered/Resolved]
  - Pyrexia [Recovered/Resolved]
  - Hair colour changes [Unknown]
  - Eye disorder [Unknown]
  - Chills [Recovered/Resolved]
  - Fatigue [Not Recovered/Not Resolved]
  - Peripheral swelling [Unknown]
  - Dyspnoea [Unknown]
  - Incision site pain [Not Recovered/Not Resolved]
  - Diarrhoea [Recovered/Resolved]

NARRATIVE: CASE EVENT DATE: 202002
